FAERS Safety Report 6497955-0 (Version None)
Quarter: 2009Q4

REPORT INFORMATION
  Report Type: 
  Country: None (occurrence: None)
  Receive Date: 20091215
  Receipt Date: 20091202
  Transmission Date: 20100525
  Serious: Yes (Hospitalization, Other)
  Sender: FDA-Public Use
  Company Number: GB-PFIZER INC-2009304648

PATIENT
  Age: 77 Year
  Sex: Male

DRUGS (2)
  1. PHENYTOIN AND PHENYTOIN SODIUM [Suspect]
     Indication: EPILEPSY
     Dosage: 350 MG, 1X/DAY
  2. CAPECITABINE [Interacting]
     Indication: COLON CANCER

REACTIONS (1)
  - POTENTIATING DRUG INTERACTION [None]
